FAERS Safety Report 5256941-9 (Version None)
Quarter: 2007Q1

REPORT INFORMATION
  Report Type: 
  Country: None (occurrence: None)
  Receive Date: 20070305
  Receipt Date: 20070305
  Transmission Date: 20070707
  Serious: Yes (Other)
  Sender: FDA-Public Use
  Company Number: None

PATIENT
  Age: 38 Year
  Sex: Female
  Weight: 58.9676 kg

DRUGS (4)
  1. CYMBALTA [Suspect]
     Indication: DEPRESSION
     Dosage: 30 MG QD PO
     Route: 048
  2. CYMBALTA [Suspect]
     Indication: DRUG WITHDRAWAL SYNDROME
     Dosage: 30 MG QD PO
     Route: 048
  3. ADDERALL 10 [Concomitant]
  4. AMBIEN [Concomitant]

REACTIONS (10)
  - ANXIETY [None]
  - BLOOD PRESSURE INCREASED [None]
  - DIZZINESS [None]
  - DRUG WITHDRAWAL SYNDROME [None]
  - FATIGUE [None]
  - HALLUCINATIONS, MIXED [None]
  - INFLUENZA LIKE ILLNESS [None]
  - MEGACOLON [None]
  - NIGHTMARE [None]
  - VOLVULUS [None]
